FAERS Safety Report 16844172 (Version 1)
Quarter: 2019Q3

REPORT INFORMATION
  Report Type: Spontaneous
  Country: US (occurrence: US)
  Receive Date: 20190802
  Receipt Date: 20190802
  Transmission Date: 20191005
  Serious: Yes (Hospitalization)
  Sender: FDA-Public Use
  Company Number: None

PATIENT
  Age: 33 Year
  Sex: Female
  Weight: 68 kg

DRUGS (9)
  1. CYCLOPHOSPHAMIDE. [Suspect]
     Active Substance: CYCLOPHOSPHAMIDE
     Dates: end: 20190422
  2. ETOPOSIDE (VP-16) [Suspect]
     Active Substance: ETOPOSIDE
     Dates: end: 20190708
  3. DAUNORUBICIN [Suspect]
     Active Substance: DAUNORUBICIN
     Dates: end: 20190307
  4. ONCASPAR [Suspect]
     Active Substance: PEGASPARGASE
     Dates: end: 20190712
  5. VINCRISTINE SULFATE. [Suspect]
     Active Substance: VINCRISTINE SULFATE
     Dates: end: 20190307
  6. DEXAMETHASONE. [Suspect]
     Active Substance: DEXAMETHASONE
     Dates: end: 20190306
  7. METHOTREXATE. [Suspect]
     Active Substance: METHOTREXATE
     Dates: end: 20190708
  8. CYTARABINE. [Suspect]
     Active Substance: CYTARABINE
     Dates: end: 20190712
  9. MERCAPTOPURINE. [Suspect]
     Active Substance: MERCAPTOPURINE
     Dates: end: 20190331

REACTIONS (16)
  - Infusion related reaction [None]
  - Hypophagia [None]
  - Erythema [None]
  - Suicidal ideation [None]
  - Major depression [None]
  - Poor quality sleep [None]
  - Throat tightness [None]
  - Flushing [None]
  - Psychotic disorder [None]
  - Mania [None]
  - Thinking abnormal [None]
  - Anxiety [None]
  - Feeling of despair [None]
  - Blood pressure decreased [None]
  - Depression [None]
  - Febrile neutropenia [None]

NARRATIVE: CASE EVENT DATE: 20190708
